FAERS Safety Report 11928821 (Version 3)
Quarter: 2017Q1

REPORT INFORMATION
  Report Type: Spontaneous
  Country: DE (occurrence: DE)
  Receive Date: 20160119
  Receipt Date: 20170103
  Transmission Date: 20170428
  Serious: Yes (Other)
  Sender: FDA-Public Use
  Company Number: PHHY2016DE002588

PATIENT
  Sex: Male
  Weight: 89.7 kg

DRUGS (3)
  1. COSENTYX [Suspect]
     Active Substance: SECUKINUMAB
     Dosage: 300 MG, PER APPLICATION
     Route: 058
     Dates: start: 20161215
  2. COSENTYX [Suspect]
     Active Substance: SECUKINUMAB
     Dosage: 300 MG, PER APPLICATION
     Route: 058
     Dates: start: 20160106
  3. COSENTYX [Suspect]
     Active Substance: SECUKINUMAB
     Indication: PSORIASIS
     Dosage: 300 MG, PER APPLICATION
     Route: 058
     Dates: start: 20151208

REACTIONS (9)
  - Hypotonia [Unknown]
  - Lymphopenia [Recovered/Resolved]
  - Circulatory collapse [Recovered/Resolved]
  - Chills [Recovered/Resolved]
  - Bronchitis [Unknown]
  - Drug ineffective [Recovering/Resolving]
  - Respiratory tract infection [Recovered/Resolved]
  - C-reactive protein increased [Recovered/Resolved]
  - Leukocytosis [Recovered/Resolved]

NARRATIVE: CASE EVENT DATE: 20151221
